FAERS Safety Report 11059979 (Version 1)
Quarter: 2015Q2

REPORT INFORMATION
  Report Type: Spontaneous
  Country: US (occurrence: None)
  Receive Date: 20150422
  Receipt Date: 20150422
  Transmission Date: 20150821
  Serious: Yes (Hospitalization, Other)
  Sender: FDA-Public Use
  Company Number: 201504-US-000721

PATIENT
  Age: 52 Year
  Sex: Male
  Weight: 130 kg

DRUGS (2)
  1. LISINOPRIL. [Concomitant]
     Active Substance: LISINOPRIL
  2. FLEET [Suspect]
     Active Substance: BISACODYL\GLYCERIN\MINERAL OIL\SODIUM PHOSPHATE, DIBASIC\SODIUM PHOSPHATE, MONOBASIC
     Indication: CONSTIPATION
     Dosage: 1 IN 24HRS
     Route: 054
     Dates: start: 201404, end: 201404

REACTIONS (5)
  - Dehydration [None]
  - Dyspnoea [None]
  - Blood calcium increased [None]
  - Acute phosphate nephropathy [None]
  - Acute kidney injury [None]

NARRATIVE: CASE EVENT DATE: 20140415
